FAERS Safety Report 24414287 (Version 2)
Quarter: 2025Q3

REPORT INFORMATION
  Report Type: Report from Study
  Country: EG (occurrence: EG)
  Receive Date: 20241009
  Receipt Date: 20250804
  Transmission Date: 20251020
  Serious: Yes (Other)
  Sender: ALEXION PHARMACEUTICALS
  Company Number: EG-AstraZeneca-CH-00714117A

PATIENT
  Age: 69 Year
  Sex: Female

DRUGS (5)
  1. IMFINZI [Suspect]
     Active Substance: DURVALUMAB
     Indication: Cholangiocarcinoma
     Dates: start: 20240727, end: 20240907
  2. OLMESARTAN MEDOXOMIL [Concomitant]
     Active Substance: OLMESARTAN MEDOXOMIL
     Route: 065
  3. ELIQUIS [Concomitant]
     Active Substance: APIXABAN
     Route: 065
  4. GEMCITABINE [Concomitant]
     Active Substance: GEMCITABINE
     Route: 065
  5. CISPLATIN [Concomitant]
     Active Substance: CISPLATIN
     Route: 065

REACTIONS (3)
  - Malignant neoplasm progression [Unknown]
  - Hypertension [Unknown]
  - Atrial flutter [Unknown]

NARRATIVE: CASE EVENT DATE: 20240925
